FAERS Safety Report 25529138 (Version 1)
Quarter: 2025Q3

REPORT INFORMATION
  Report Type: Spontaneous
  Country: US (occurrence: US)
  Receive Date: 20250708
  Receipt Date: 20250708
  Transmission Date: 20251021
  Serious: Yes (Other)
  Sender: INCYTE
  Company Number: US-INCYTE CORPORATION-2025IN007361

PATIENT
  Age: 90 Year

DRUGS (1)
  1. JAKAFI [Suspect]
     Active Substance: RUXOLITINIB
     Dosage: 5 MILLIGRAM, BID

REACTIONS (4)
  - Skin cancer [Unknown]
  - Chest injury [Recovering/Resolving]
  - Fall [Recovering/Resolving]
  - Asthenia [Unknown]
